FAERS Safety Report 16077846 (Version 1)
Quarter: 2019Q1

REPORT INFORMATION
  Report Type: Spontaneous
  Country: US (occurrence: US)
  Receive Date: 20190315
  Receipt Date: 20190315
  Transmission Date: 20190418
  Serious: Yes (Other)
  Sender: FDA-Public Use
  Company Number: US-SA-2019SA066482

PATIENT
  Age: 57 Year
  Sex: Male

DRUGS (3)
  1. GUAIFENESIN. [Suspect]
     Active Substance: GUAIFENESIN
     Dosage: UNK UNK, UNK
     Route: 065
  2. NASACORT ALLERGY 24HR [Suspect]
     Active Substance: TRIAMCINOLONE ACETONIDE
     Indication: MYCOTIC ALLERGY
     Dosage: TWO SPRAYS/NOSTRIL, BID
     Route: 065
     Dates: start: 20190301
  3. CETIRIZINE HYDROCHLORIDE. [Suspect]
     Active Substance: CETIRIZINE HYDROCHLORIDE
     Dosage: UNK UNK, UNK
     Route: 065

REACTIONS (1)
  - Pneumonia [Unknown]
